FAERS Safety Report 16312260 (Version 3)
Quarter: 2022Q1

REPORT INFORMATION
  Report Type: Spontaneous
  Country: BR (occurrence: BR)
  Receive Date: 20190515
  Receipt Date: 20220130
  Transmission Date: 20220424
  Serious: Yes (Death, Other)
  Sender: FDA-Public Use
  Company Number: BR-JAZZ-2019-BR-006517

PATIENT
  Age: 17 Year
  Sex: Male

DRUGS (3)
  1. DEFIBROTIDE SODIUM [Suspect]
     Active Substance: DEFIBROTIDE SODIUM
     Indication: Venoocclusive liver disease
     Dosage: UNK
     Route: 042
     Dates: start: 20171204, end: 20171221
  2. METHYLPREDNISOLONE [Concomitant]
     Active Substance: METHYLPREDNISOLONE
     Indication: Product used for unknown indication
     Dosage: 1 MG/KG, QD
  3. METHYLPREDNISOLONE [Concomitant]
     Active Substance: METHYLPREDNISOLONE
     Dosage: 2 MG/KG, QD

REACTIONS (11)
  - Death [Fatal]
  - Renal failure [Unknown]
  - Thrombotic microangiopathy [Unknown]
  - Graft versus host disease in skin [Unknown]
  - Encephalopathy [Unknown]
  - Pericarditis [Unknown]
  - Viral haemorrhagic cystitis [Unknown]
  - Stenotrophomonas infection [Unknown]
  - Dermatitis [Unknown]
  - Candida infection [Unknown]
  - Herpes zoster [Unknown]

NARRATIVE: CASE EVENT DATE: 20180820
